FAERS Safety Report 15754737 (Version 1)
Quarter: 2018Q4

REPORT INFORMATION
  Report Type: Spontaneous
  Country: IT (occurrence: IT)
  Receive Date: 20181224
  Receipt Date: 20181224
  Transmission Date: 20190205
  Serious: Yes (Death, Hospitalization, Other)
  Sender: FDA-Public Use
  Company Number: IT-TEVA-2018-IT-991711

PATIENT
  Age: 60 Year
  Sex: Male

DRUGS (3)
  1. METHOTREXATE. [Suspect]
     Active Substance: METHOTREXATE
     Indication: CONGENITAL SYPHILITIC OSTEOCHONDRITIS
     Route: 065
  2. CYCLOPHOSPHAMIDE. [Suspect]
     Active Substance: CYCLOPHOSPHAMIDE
     Indication: CONGENITAL SYPHILITIC OSTEOCHONDRITIS
     Route: 065
  3. RITUXIMAB. [Suspect]
     Active Substance: RITUXIMAB
     Indication: CONGENITAL SYPHILITIC OSTEOCHONDRITIS
     Route: 065

REACTIONS (6)
  - Squamous cell carcinoma [Recovered/Resolved]
  - Laboratory test interference [Unknown]
  - Lymphopenia [Unknown]
  - Hypogammaglobulinaemia [Unknown]
  - Glottis carcinoma [Recovered/Resolved]
  - Off label use [Unknown]
